FAERS Safety Report 17684821 (Version 10)
Quarter: 2022Q2

REPORT INFORMATION
  Report Type: Report from Study
  Country: JP (occurrence: JP)
  Receive Date: 20200420
  Receipt Date: 20220624
  Transmission Date: 20220720
  Serious: Yes (Life-Threatening, Hospitalization)
  Sender: FDA-Public Use
  Company Number: JP-BRISTOL-MYERS SQUIBB COMPANY-BMS-2020-031567

PATIENT
  Age: 71 Year
  Sex: Male
  Weight: 55.9 kg

DRUGS (11)
  1. NIVOLUMAB [Suspect]
     Active Substance: NIVOLUMAB
     Indication: Pleural mesothelioma malignant
     Dosage: 240 MILLIGRAM, Q2WK
     Route: 041
     Dates: start: 20191016, end: 20191127
  2. NIVOLUMAB [Suspect]
     Active Substance: NIVOLUMAB
     Dosage: 240 MILLIGRAM
     Route: 041
     Dates: start: 20200107, end: 20200121
  3. SULFAMETHOXAZOLE\TRIMETHOPRIM [Suspect]
     Active Substance: SULFAMETHOXAZOLE\TRIMETHOPRIM
     Indication: Prophylaxis
     Dosage: 1 DOSAGE FORM, QD
     Route: 048
     Dates: start: 20200211, end: 20200225
  4. LOXOPROFEN [Suspect]
     Active Substance: LOXOPROFEN
     Indication: Pyrexia
     Dosage: 60 MG, Q8H (CUMULATIVE 1080 MG)
     Route: 048
     Dates: start: 20200128, end: 20200202
  5. LOXOPROFEN [Suspect]
     Active Substance: LOXOPROFEN
     Indication: Headache
     Dosage: 60 MILLIGRAM, Q8H
     Route: 048
     Dates: start: 20200128, end: 20200202
  6. OMEPRAZOLE [Suspect]
     Active Substance: OMEPRAZOLE
     Indication: Prophylaxis against gastrointestinal ulcer
     Dosage: 20 MILLIGRAM, QD
     Route: 048
     Dates: start: 20200128, end: 20200202
  7. RABEPRAZOLE SODIUM [Concomitant]
     Active Substance: RABEPRAZOLE SODIUM
     Indication: Prophylaxis
     Dosage: 10 MG, EVERYDAY
     Route: 065
     Dates: start: 20200211, end: 20200226
  8. ZOPICLONE [Concomitant]
     Active Substance: ZOPICLONE
     Indication: Product used for unknown indication
     Dosage: UNK
     Route: 065
     Dates: start: 20200224, end: 20200224
  9. ACETAMINOPHEN [Concomitant]
     Active Substance: ACETAMINOPHEN
     Indication: Product used for unknown indication
     Dosage: UNK
     Route: 048
  10. ACETAMINOPHEN [Concomitant]
     Active Substance: ACETAMINOPHEN
     Route: 048
  11. FAMOTIDINE [Concomitant]
     Active Substance: FAMOTIDINE
     Indication: Product used for unknown indication
     Dosage: 20 MILLIGRAM, QD
     Route: 065
     Dates: start: 20200227

REACTIONS (5)
  - Liver disorder [Recovering/Resolving]
  - Pyrexia [Unknown]
  - Headache [Recovered/Resolved]
  - Drug eruption [Recovering/Resolving]
  - Intentional product use issue [Unknown]

NARRATIVE: CASE EVENT DATE: 20200128
